FAERS Safety Report 4511661-0 (Version None)
Quarter: 2004Q4

REPORT INFORMATION
  Report Type: 
  Country: None (occurrence: None)
  Receive Date: 20041123
  Receipt Date: 20041123
  Transmission Date: 20050328
  Serious: Yes (Hospitalization)
  Sender: FDA-Public Use
  Company Number: None

PATIENT
  Age: 54 Year
  Sex: Male

DRUGS (10)
  1. LITHIUM [Suspect]
     Indication: SCHIZOPHRENIA
     Dosage: 450 MG BID ORAL
     Route: 048
  2. DISULFIRAM [Concomitant]
  3. BENZTROPINE MESYLATE [Concomitant]
  4. NIFEDIPINE [Concomitant]
  5. GLUCOVANCE [Concomitant]
  6. BENAZEPRIL HCL [Concomitant]
  7. HALOPERIDOL [Concomitant]
  8. RISPERIDONE [Concomitant]
  9. ATORVASTATIN [Concomitant]
  10. HYDROCHLOROTHIAZIDE [Concomitant]

REACTIONS (9)
  - ANTIPSYCHOTIC DRUG LEVEL INCREASED [None]
  - ASTHENIA [None]
  - BLOOD CREATININE INCREASED [None]
  - DEHYDRATION [None]
  - DIARRHOEA [None]
  - DYSARTHRIA [None]
  - HAEMODIALYSIS [None]
  - LOSS OF CONSCIOUSNESS [None]
  - PAIN [None]
